FAERS Safety Report 7131519-0 (Version None)
Quarter: 2010Q4

REPORT INFORMATION
  Report Type: 
  Country: None (occurrence: None)
  Receive Date: 20101201
  Receipt Date: 20101115
  Transmission Date: 20110411
  Serious: Yes (Hospitalization, Other)
  Sender: FDA-Public Use
  Company Number: US-ROCHE-679419

PATIENT
  Sex: Male
  Weight: 64.5 kg

DRUGS (20)
  1. TOCILIZUMAB [Suspect]
     Indication: RHEUMATOID ARTHRITIS
     Dosage: STARTING DOSE: 64.5 MG/KG
     Route: 042
     Dates: start: 20091118, end: 20091118
  2. TOCILIZUMAB [Suspect]
     Route: 042
     Dates: start: 20091214
  3. TOCILIZUMAB [Suspect]
     Route: 042
     Dates: start: 20100112
  4. TOCILIZUMAB [Suspect]
     Route: 042
     Dates: start: 20100215
  5. RELAFEN [Concomitant]
     Route: 048
     Dates: start: 19990101
  6. PLAQUENIL [Concomitant]
     Indication: RHEUMATOID ARTHRITIS
     Route: 048
     Dates: start: 20090101
  7. LORTAB [Concomitant]
     Indication: RHEUMATOID ARTHRITIS
     Route: 048
     Dates: start: 20050101, end: 20091228
  8. LORTAB [Concomitant]
     Dosage: AS NECESSARY
     Route: 048
     Dates: start: 20100925
  9. FLEXERIL [Concomitant]
     Route: 048
     Dates: start: 20040101
  10. PREDNISONE [Concomitant]
     Dosage: TAPPER DOSE
     Route: 048
     Dates: start: 20091228, end: 20100104
  11. PREDNISONE [Concomitant]
     Route: 048
     Dates: start: 20100318, end: 20100325
  12. LEVAQUIN [Concomitant]
     Dosage: FREQUENCY: EVERY DAY
  13. PERCOCET [Concomitant]
     Dosage: FREQUENCY: EVERY 6 HOURS PRN
  14. ADVAIR [Concomitant]
     Dosage: 1 INHALATION BID
     Route: 055
     Dates: start: 20100318
  15. DUONEB [Concomitant]
     Dates: start: 20091224, end: 20091230
  16. DUONEB [Concomitant]
     Dates: start: 20100318
  17. CYCLOBENAZPRINE [Concomitant]
     Dosage: AS NECESSARY
  18. AUGMENTIN [Concomitant]
  19. NICOTINE [Concomitant]
     Dates: start: 20100318
  20. PRILOSEC [Concomitant]
     Dates: start: 20100318

REACTIONS (5)
  - BRONCHITIS [None]
  - CHRONIC OBSTRUCTIVE PULMONARY DISEASE [None]
  - HAEMOPTYSIS [None]
  - PHARYNGEAL ULCERATION [None]
  - PNEUMONIA [None]
